FAERS Safety Report 24620694 (Version 1)
Quarter: 2024Q4

REPORT INFORMATION
  Report Type: Spontaneous
  Country: US (occurrence: None)
  Receive Date: 20241114
  Receipt Date: 20241114
  Transmission Date: 20250115
  Serious: Yes (Disabling, Other)
  Sender: Public
  Company Number: None

PATIENT
  Age: 46 Year
  Sex: Female
  Weight: 58.5 kg

DRUGS (3)
  1. EMGALITY [Suspect]
     Active Substance: GALCANEZUMAB-GNLM
  2. TEMAZEPAM [Concomitant]
     Active Substance: TEMAZEPAM
  3. hormone replacement therapy [Concomitant]

REACTIONS (25)
  - Arthralgia [None]
  - Musculoskeletal stiffness [None]
  - Burning sensation [None]
  - Migraine [None]
  - Cognitive disorder [None]
  - Visual acuity reduced [None]
  - Loss of personal independence in daily activities [None]
  - Pain [None]
  - Gait disturbance [None]
  - Deep vein thrombosis [None]
  - Neuralgia [None]
  - Suture related complication [None]
  - Constipation [None]
  - Diarrhoea [None]
  - Gastritis [None]
  - Palpitations [None]
  - Fatigue [None]
  - Tremor [None]
  - Tremor [None]
  - Insomnia [None]
  - Dyskinesia [None]
  - Hyperhidrosis [None]
  - Pyrexia [None]
  - Pelvic pain [None]
  - Back pain [None]

NARRATIVE: CASE EVENT DATE: 20240201
